FAERS Safety Report 18133925 (Version 3)
Quarter: 2020Q4

REPORT INFORMATION
  Report Type: Spontaneous
  Country: TH (occurrence: TH)
  Receive Date: 20200811
  Receipt Date: 20201204
  Transmission Date: 20210113
  Serious: Yes (Death, Hospitalization, Other)
  Sender: FDA-Public Use
  Company Number: NVSC2020TH220423

PATIENT
  Age: 59 Year
  Sex: Male

DRUGS (2)
  1. ZYKADIA [Suspect]
     Active Substance: CERITINIB
     Indication: NON-SMALL CELL LUNG CANCER
  2. ZYKADIA [Suspect]
     Active Substance: CERITINIB
     Indication: LUNG ADENOCARCINOMA
     Dosage: 3 DF, QD (150)
     Route: 048
     Dates: start: 20190821

REACTIONS (22)
  - Acute kidney injury [Unknown]
  - Metastases to bone [Unknown]
  - Ascites [Unknown]
  - Liver function test abnormal [Unknown]
  - Bone pain [Recovering/Resolving]
  - Nausea [Recovered/Resolved]
  - Platelet count increased [Unknown]
  - Blood sodium decreased [Unknown]
  - Asthenia [Unknown]
  - Anaemia [Unknown]
  - Death [Fatal]
  - Decreased appetite [Unknown]
  - Neutropenia [Unknown]
  - Dizziness [Recovered/Resolved]
  - Gastrointestinal obstruction [Unknown]
  - Dyspnoea [Unknown]
  - Fatigue [Unknown]
  - Metastases to liver [Unknown]
  - Arthralgia [Unknown]
  - Diarrhoea [Unknown]
  - Vomiting [Recovered/Resolved]
  - Abdominal distension [Unknown]
